FAERS Safety Report 5608549-0 (Version None)
Quarter: 2008Q1

REPORT INFORMATION
  Report Type: 
  Country: None (occurrence: None)
  Receive Date: 20080125
  Receipt Date: 20080114
  Transmission Date: 20080703
  Serious: Yes (Other)
  Sender: FDA-Public Use
  Company Number: CHNY2007GB03849

PATIENT
  Age: 22 Year
  Sex: Male

DRUGS (19)
  1. SCOPODER TTS (NCH) (HYOSCINE HYDROBROMIDE) TRANS-THERAPEUTIC SYSTEM [Suspect]
     Indication: SALIVARY HYPERSECRETION
     Dosage: 1 PATCH EVERY 3 DAYS AS REQUIRED, TRANSDERMAL
     Route: 062
     Dates: end: 20071101
  2. GLUTAMINE (LEVOGLUTAMIDE) [Concomitant]
  3. ASCORBIC ACID [Concomitant]
  4. PYRIDOXINE (PYRIDOXINE) [Concomitant]
  5. ACIDIPHILUS [Concomitant]
  6. CLONAZEPAM [Concomitant]
  7. PHENYTOIN [Concomitant]
  8. ZONEGRAN [Concomitant]
  9. GLYCERIN SUPPOSITORIES (GLYCEROL, SODIUM STEARATE) [Concomitant]
  10. LACTULOSE [Concomitant]
  11. BENEFIBER (CYANOSIS TETRAGONOLOBUS GUM) [Concomitant]
  12. COLOMYCIN (COLISTIN) [Concomitant]
  13. GAVISCON [Concomitant]
  14. NUTRISON (CARBOHYDRATES NOS, LIPIDS NOS, PROTEINS NOS) [Concomitant]
  15. ACETAMINOPHEN [Concomitant]
  16. MIDAZOLAM HCL [Concomitant]
  17. DIAZEPAM [Concomitant]
  18. IBUPROFEN [Concomitant]
  19. BISACODYL (BISACODYL) [Concomitant]

REACTIONS (11)
  - APPLICATION SITE ERYTHEMA [None]
  - APPLICATION SITE IRRITATION [None]
  - CONDITION AGGRAVATED [None]
  - CONVULSION [None]
  - DRUG EFFECT DECREASED [None]
  - ERYTHEMA [None]
  - OFF LABEL USE [None]
  - PURULENCE [None]
  - SKIN REACTION [None]
  - WOUND SECRETION [None]
  - WRONG TECHNIQUE IN DRUG USAGE PROCESS [None]
